FAERS Safety Report 17075979 (Version 2)
Quarter: 2020Q1

REPORT INFORMATION
  Report Type: Spontaneous
  Country: US (occurrence: US)
  Receive Date: 20191126
  Receipt Date: 20200324
  Transmission Date: 20200409
  Serious: Yes (Hospitalization, Other)
  Sender: FDA-Public Use
  Company Number: US-GILEAD-2019-0439511

PATIENT
  Sex: Male

DRUGS (98)
  1. PRILOSEC [Concomitant]
     Active Substance: OMEPRAZOLE MAGNESIUM
  2. VITAMIN D2 [Concomitant]
     Active Substance: ERGOCALCIFEROL
  3. HYDROCHLOROTHIAZIDE. [Concomitant]
     Active Substance: HYDROCHLOROTHIAZIDE
  4. MAXIPIME [Concomitant]
     Active Substance: CEFEPIME HYDROCHLORIDE
  5. DILTIAZEM. [Concomitant]
     Active Substance: DILTIAZEM
  6. PREPLUS B12 [Concomitant]
  7. PROBIOTIC ACIDOPHILUS [LACTOBACILLUS ACIDOPHILUS] [Concomitant]
  8. TDAP [Concomitant]
     Active Substance: TETANUS TOXOID, REDUCED DIPHTHERIA TOXOID AND ACELLULAR PERTUSSIS VACCINE ADSORBED, TDAP
     Dosage: UNK
     Dates: start: 2013, end: 2013
  9. BENADRYL [Concomitant]
     Active Substance: DIPHENHYDRAMINE HYDROCHLORIDE
  10. POTASSIUM CHLORIDE. [Concomitant]
     Active Substance: POTASSIUM CHLORIDE
  11. TRUVADA [Suspect]
     Active Substance: EMTRICITABINE\TENOFOVIR DISOPROXIL FUMARATE
     Indication: HIV INFECTION
     Dosage: 1 DOSAGE FORM, QD
     Route: 048
     Dates: start: 20100526, end: 201008
  12. STRIBILD [Suspect]
     Active Substance: COBICISTAT\ELVITEGRAVIR\EMTRICITABINE\TENOFOVIR DISOPROXIL FUMARATE
     Indication: HIV INFECTION
     Dosage: UNK
     Route: 065
     Dates: start: 2015, end: 2015
  13. DESCOVY [Concomitant]
     Active Substance: EMTRICITABINE\TENOFOVIR ALAFENAMIDE FUMARATE
  14. DAPSONE. [Concomitant]
     Active Substance: DAPSONE
  15. ANDROGEL [Concomitant]
     Active Substance: TESTOSTERONE
  16. BETAMETHASONE. [Concomitant]
     Active Substance: BETAMETHASONE
  17. NEPRO [NUTRIENTS NOS] [Concomitant]
  18. ATORVASTATIN [Concomitant]
     Active Substance: ATORVASTATIN
  19. MUPIROCIN. [Concomitant]
     Active Substance: MUPIROCIN
  20. TAB A VITE [Concomitant]
  21. MUCINEX [Concomitant]
     Active Substance: GUAIFENESIN
  22. ALBUMIN [Concomitant]
     Active Substance: ALBUMIN HUMAN
  23. ATRIPLA [Suspect]
     Active Substance: EFAVIRENZ\EMTRICITABINE\TENOFOVIR DISOPROXIL FUMARATE
     Indication: HIV INFECTION
     Dosage: UNK
     Route: 065
     Dates: start: 2003, end: 2005
  24. DOXYCYCLINE. [Concomitant]
     Active Substance: DOXYCYCLINE
  25. KENALOG [Concomitant]
     Active Substance: TRIAMCINOLONE ACETONIDE
  26. WESTCORT [Concomitant]
     Active Substance: HYDROCORTISONE VALERATE
  27. FUROSEMIDE. [Concomitant]
     Active Substance: FUROSEMIDE
     Indication: PERIPHERAL SWELLING
     Dosage: UNK
     Dates: start: 20160912
  28. CIPRO [Concomitant]
     Active Substance: CIPROFLOXACIN HYDROCHLORIDE
  29. ACETAMINOPHEN;CODEINE [Concomitant]
     Active Substance: ACETAMINOPHEN\CODEINE PHOSPHATE
  30. CLOBETASOL [Concomitant]
     Active Substance: CLOBETASOL
  31. TAMIFLU [Concomitant]
     Active Substance: OSELTAMIVIR PHOSPHATE
  32. FLUCONAZOLE. [Concomitant]
     Active Substance: FLUCONAZOLE
  33. BICILLIN L-A [Concomitant]
     Active Substance: PENICILLIN G BENZATHINE
     Dosage: UNK
     Dates: start: 20150921, end: 20150921
  34. NASONEX [Concomitant]
     Active Substance: MOMETASONE FUROATE
  35. DICLOFENAC [Concomitant]
     Active Substance: DICLOFENAC
  36. MYCAMINE [Concomitant]
     Active Substance: MICAFUNGIN SODIUM
  37. ALPRAZOLAM. [Concomitant]
     Active Substance: ALPRAZOLAM
  38. IRON [Concomitant]
     Active Substance: IRON
  39. VERAPAMIL [Concomitant]
     Active Substance: VERAPAMIL HYDROCHLORIDE
  40. SULFAMETHOXAZOLE;TRIMETHOPRIM [Concomitant]
     Active Substance: SULFAMETHOXAZOLE\TRIMETHOPRIM
  41. AUGMENTIN [Concomitant]
     Active Substance: AMOXICILLIN\CLAVULANATE POTASSIUM
  42. CEPHALEXIN [CEFALEXIN] [Concomitant]
     Active Substance: CEPHALEXIN
  43. MINERALS NOS;VITAMINS NOS [Concomitant]
     Active Substance: MINERALS\VITAMINS
  44. NORVIR [Concomitant]
     Active Substance: RITONAVIR
  45. EDURANT [Concomitant]
     Active Substance: RILPIVIRINE HYDROCHLORIDE
  46. CHOLESTYRAMINE. [Concomitant]
     Active Substance: CHOLESTYRAMINE
  47. NIZORAL [Concomitant]
     Active Substance: KETOCONAZOLE
  48. FERROUS SULFATE. [Concomitant]
     Active Substance: FERROUS SULFATE
  49. DRONABINOL. [Concomitant]
     Active Substance: DRONABINOL
  50. ECONAZOLE. [Concomitant]
     Active Substance: ECONAZOLE NITRATE
  51. HYDROCORTISONE. [Concomitant]
     Active Substance: HYDROCORTISONE
  52. PERMETHRIN. [Concomitant]
     Active Substance: PERMETHRIN
  53. POLYETHYLENE GLYCOL [Concomitant]
     Active Substance: POLYETHYLENE GLYCOLS
  54. METRONIDAZOLE. [Concomitant]
     Active Substance: METRONIDAZOLE
  55. FIBER LAX [Concomitant]
     Active Substance: CALCIUM POLYCARBOPHIL
  56. METHYLPREDNISOLONE. [Concomitant]
     Active Substance: METHYLPREDNISOLONE
  57. NEXIUM [Concomitant]
     Active Substance: ESOMEPRAZOLE MAGNESIUM
  58. CIALIS [Concomitant]
     Active Substance: TADALAFIL
  59. MINOCYCLINE [Concomitant]
     Active Substance: MINOCYCLINE HYDROCHLORIDE
  60. DUONEB [Concomitant]
     Active Substance: ALBUTEROL SULFATE\IPRATROPIUM BROMIDE
  61. MAGNESIUM SULFATE IN DEXTROSE [Concomitant]
     Active Substance: MAGNESIUM SULFATE
  62. TRUVADA [Suspect]
     Active Substance: EMTRICITABINE\TENOFOVIR DISOPROXIL FUMARATE
     Dosage: 1 DOSAGE FORM, QD
     Route: 048
     Dates: start: 201202, end: 201212
  63. GENVOYA [Concomitant]
     Active Substance: COBICISTAT\ELVITEGRAVIR\EMTRICITABINE\TENOFOVIR ALAFENAMIDE FUMARATE
  64. TIVICAY [Concomitant]
     Active Substance: DOLUTEGRAVIR SODIUM
  65. COBICISTAT;DARUNAVIR [Concomitant]
     Active Substance: COBICISTAT\DARUNAVIR ETHANOLATE
  66. PREZCOBIX [Concomitant]
     Active Substance: COBICISTAT\DARUNAVIR ETHANOLATE
  67. TRIUMEQ [Concomitant]
     Active Substance: ABACAVIR SULFATE\DOLUTEGRAVIR SODIUM\LAMIVUDINE
  68. ZYVOX [Concomitant]
     Active Substance: LINEZOLID
  69. BENZOYL PEROXIDE. [Concomitant]
     Active Substance: BENZOYL PEROXIDE
  70. CYPROHEPTADINE. [Concomitant]
     Active Substance: CYPROHEPTADINE
  71. PROMETHAZINE [Concomitant]
     Active Substance: PROMETHAZINE HYDROCHLORIDE
  72. KETOCONAZOLE. [Concomitant]
     Active Substance: KETOCONAZOLE
  73. ENDOCET [Concomitant]
     Active Substance: ACETAMINOPHEN\OXYCODONE HYDROCHLORIDE
  74. PNV PLUS [Concomitant]
  75. DEXTROAMPHETAMINE, AMPHETAMINE [Concomitant]
  76. TRUVADA [Suspect]
     Active Substance: EMTRICITABINE\TENOFOVIR DISOPROXIL FUMARATE
     Dosage: 1 DOSAGE FORM, QD
     Route: 048
     Dates: start: 201401, end: 201402
  77. PREZISTA [Concomitant]
     Active Substance: DARUNAVIR ETHANOLATE
  78. ISENTRESS [Concomitant]
     Active Substance: RALTEGRAVIR POTASSIUM
  79. IMODIUM A-D [Concomitant]
     Active Substance: LOPERAMIDE HYDROCHLORIDE
  80. FIBERCON [Concomitant]
     Active Substance: CALCIUM POLYCARBOPHIL
  81. THERAGRAN [VITAMINS NOS] [Concomitant]
  82. ALBUTEROL HFA [Concomitant]
     Active Substance: ALBUTEROL SULFATE
  83. FLONASE [Concomitant]
     Active Substance: FLUTICASONE PROPIONATE
  84. DIPHENHYDRAMINE HCL;LIDOCAINE;NYSTATIN [Concomitant]
  85. HEMORRHOIDAL HC [HYDROCORTISONE ACETATE] [Concomitant]
  86. PEG 3350 + ELECTROLYTES [Concomitant]
  87. DEXTROAMPHET SACCHARAT, AMPHET ASPARTATE, DEXTROAMPHET SULFATE AND AMPHET SULFAT [Concomitant]
     Active Substance: AMPHETAMINE ASPARTATE\AMPHETAMINE SULFATE\DEXTROAMPHETAMINE SACCHARATE\DEXTROAMPHETAMINE SULFATE
  88. FLUOCINONIDE-E [Concomitant]
     Active Substance: FLUOCINONIDE
  89. DILAUDID [Concomitant]
     Active Substance: HYDROMORPHONE HYDROCHLORIDE
  90. TRUVADA [Suspect]
     Active Substance: EMTRICITABINE\TENOFOVIR DISOPROXIL FUMARATE
     Dosage: 1 DOSAGE FORM, QD
     Route: 048
     Dates: start: 201503, end: 20160602
  91. ZITHROMAX [Concomitant]
     Active Substance: AZITHROMYCIN DIHYDRATE
  92. FAMOTIDINE. [Concomitant]
     Active Substance: FAMOTIDINE
  93. MULTIVITAMIN WITH MINERALS [Concomitant]
     Active Substance: MINERALS\VITAMINS
  94. LOTRISONE [Concomitant]
     Active Substance: BETAMETHASONE DIPROPIONATE\CLOTRIMAZOLE
  95. CLOTRIMAZOLE. [Concomitant]
     Active Substance: CLOTRIMAZOLE
  96. DIFLUCAN [Concomitant]
     Active Substance: FLUCONAZOLE
  97. ARANESP [Concomitant]
     Active Substance: DARBEPOETIN ALFA
  98. ZOFRAN [Concomitant]
     Active Substance: ONDANSETRON HYDROCHLORIDE

REACTIONS (12)
  - Acute kidney injury [Unknown]
  - Osteoporosis [Not Recovered/Not Resolved]
  - Osteopenia [Not Recovered/Not Resolved]
  - Anhedonia [Unknown]
  - Fatigue [Not Recovered/Not Resolved]
  - Pain [Unknown]
  - Emotional distress [Unknown]
  - Economic problem [Unknown]
  - Asthenia [Not Recovered/Not Resolved]
  - Musculoskeletal pain [Not Recovered/Not Resolved]
  - Chronic kidney disease [Not Recovered/Not Resolved]
  - Anxiety [Unknown]

NARRATIVE: CASE EVENT DATE: 2015
